FAERS Safety Report 4675980-X (Version None)
Quarter: 2005Q2

REPORT INFORMATION
  Report Type: 
  Country: None (occurrence: None)
  Receive Date: 20050527
  Receipt Date: 20050421
  Transmission Date: 20051028
  Serious: No
  Sender: FDA-Public Use
  Company Number: US-GLAXOSMITHKLINE-A0555224A

PATIENT
  Age: 59 Year
  Sex: Female

DRUGS (3)
  1. WELLBUTRIN XL [Suspect]
     Indication: ILL-DEFINED DISORDER
     Dosage: 450MG PER DAY
     Route: 048
     Dates: start: 20050322
  2. ZOLOFT [Concomitant]
  3. ATIVAN [Concomitant]

REACTIONS (1)
  - PARAESTHESIA [None]
